FAERS Safety Report 6998489-7 (Version None)
Quarter: 2010Q3

REPORT INFORMATION
  Report Type: 
  Country: None (occurrence: None)
  Receive Date: 20100920
  Receipt Date: 20100330
  Transmission Date: 20110219
  Serious: Yes (Other)
  Sender: FDA-Public Use
  Company Number: US-ASTRAZENECA-2006UW08897

PATIENT
  Age: 504 Month
  Sex: Female

DRUGS (6)
  1. SEROQUEL [Suspect]
     Indication: PARANOIA
     Route: 048
     Dates: start: 20000101
  2. SEROQUEL [Suspect]
     Indication: ANXIETY
     Route: 048
     Dates: start: 20000101
  3. SEROQUEL [Suspect]
     Route: 048
     Dates: start: 20040615
  4. SEROQUEL [Suspect]
     Route: 048
     Dates: start: 20040615
  5. RISPERDAL [Suspect]
     Indication: PARANOIA
     Route: 065
     Dates: start: 20000101, end: 20040101
  6. RISPERDAL [Suspect]
     Indication: ANXIETY
     Route: 065
     Dates: start: 20000101, end: 20040101

REACTIONS (1)
  - PANCREATITIS [None]
